FAERS Safety Report 4952931-1 (Version None)
Quarter: 2006Q1

REPORT INFORMATION
  Report Type: 
  Country: None (occurrence: None)
  Receive Date: 20060324
  Receipt Date: 20060315
  Transmission Date: 20060701
  Serious: Yes (Disabling)
  Sender: FDA-Public Use
  Company Number: PHBS2006IT04144

PATIENT
  Age: 63 Year
  Sex: Female

DRUGS (10)
  1. ZOMETA [Suspect]
     Indication: METASTASES TO BONE
     Dosage: 4 MG, QMO
     Route: 042
     Dates: start: 20050513, end: 20060119
  2. VINORELBINE [Concomitant]
     Route: 065
  3. ARIMIDEX [Concomitant]
     Route: 065
  4. FARLUTAL [Concomitant]
     Route: 065
  5. AMARYL [Concomitant]
     Route: 065
  6. PRAVASELECT [Concomitant]
     Route: 065
  7. ENAPREN [Concomitant]
     Route: 065
  8. PANTECTA [Concomitant]
     Route: 065
  9. GLUCOPHAGE [Concomitant]
     Route: 065
  10. METFORAL [Concomitant]
     Route: 065

REACTIONS (2)
  - ORAL PAIN [None]
  - OSTEONECROSIS [None]
